FAERS Safety Report 9744535 (Version 2)
Quarter: 2013Q4

REPORT INFORMATION
  Report Type: Report from Study
  Country: CA (occurrence: CA)
  Receive Date: 20131210
  Receipt Date: 20131210
  Transmission Date: 20140711
  Serious: Yes (Hospitalization)
  Sender: FDA-Public Use
  Company Number: CA-B.I. PHARMACEUTICALS,INC./RIDGEFIELD-2013-BI-31356BI

PATIENT
  Age: 68 Year
  Sex: Male
  Weight: 88.3 kg

DRUGS (8)
  1. DABIGATRAN [Suspect]
     Indication: ATRIAL FIBRILLATION
     Dosage: 150 MG
     Route: 048
     Dates: start: 20111123
  2. DABIGATRAN [Suspect]
     Dosage: 150 MG
     Route: 048
  3. CRESTOR [Concomitant]
     Indication: DYSLIPIDAEMIA
     Dosage: 40 MG
     Dates: start: 200806
  4. EZETROL [Concomitant]
     Indication: DYSLIPIDAEMIA
     Dosage: 10 MG
  5. ALTACE [Concomitant]
     Indication: CARDIOVASCULAR EVENT PROPHYLAXIS
     Dosage: 10 MG
  6. XATRAL [Concomitant]
     Indication: BENIGN PROSTATIC HYPERPLASIA
     Dosage: 10 MG
     Dates: start: 200803
  7. ATENOLOL [Concomitant]
     Indication: CARDIOVASCULAR EVENT PROPHYLAXIS
     Dosage: 25 MG
     Route: 048
  8. AVODART [Concomitant]
     Indication: BENIGN PROSTATIC HYPERPLASIA
     Dosage: 0.5 MG
     Dates: start: 201104

REACTIONS (1)
  - Myocardial infarction [Recovered/Resolved]
